FAERS Safety Report 26092365 (Version 1)
Quarter: 2025Q4

REPORT INFORMATION
  Report Type: Spontaneous
  Country: RU (occurrence: RU)
  Receive Date: 20251126
  Receipt Date: 20251126
  Transmission Date: 20260117
  Serious: Yes (Other)
  Sender: GILEAD
  Company Number: RU-GILEAD-2025-0737012

PATIENT
  Age: 46 Year
  Sex: Male

DRUGS (2)
  1. SOFOSBUVIR\VELPATASVIR [Suspect]
     Active Substance: SOFOSBUVIR\VELPATASVIR
     Indication: Chronic hepatitis C
     Dosage: UNK
     Route: 065
  2. RIBAVIRIN [Concomitant]
     Active Substance: RIBAVIRIN

REACTIONS (4)
  - Hepatic fibrosis [Unknown]
  - Transaminases increased [Unknown]
  - Therapy non-responder [Unknown]
  - Polymerase chain reaction positive [Unknown]
